FAERS Safety Report 6203910-8 (Version None)
Quarter: 2009Q2

REPORT INFORMATION
  Report Type: 
  Country: None (occurrence: None)
  Receive Date: 20090527
  Receipt Date: 20090515
  Transmission Date: 20091009
  Serious: Yes (Hospitalization)
  Sender: FDA-Public Use
  Company Number: A0782840A

PATIENT
  Age: 63 Year
  Sex: Male
  Weight: 93.2 kg

DRUGS (7)
  1. AVANDIA [Suspect]
     Indication: DIABETES MELLITUS
     Route: 048
     Dates: start: 19990101, end: 20050601
  2. DIOVAN [Concomitant]
  3. ALTACE [Concomitant]
  4. CARDIZEM [Concomitant]
  5. VASOTEC [Concomitant]
  6. LASIX [Concomitant]
  7. ZETIA [Concomitant]

REACTIONS (3)
  - CARDIAC FAILURE CONGESTIVE [None]
  - MYOCARDIAL INFARCTION [None]
  - MYOCARDIAL ISCHAEMIA [None]
